FAERS Safety Report 15933567 (Version 1)
Quarter: 2019Q1

REPORT INFORMATION
  Report Type: Spontaneous
  Country: CZ (occurrence: CZ)
  Receive Date: 20190207
  Receipt Date: 20190207
  Transmission Date: 20190417
  Serious: Yes (Other)
  Sender: FDA-Public Use
  Company Number: CZ-MYLANLABS-2019M1010818

PATIENT
  Age: 44 Year
  Sex: Male

DRUGS (4)
  1. PREDNISONE. [Suspect]
     Active Substance: PREDNISONE
     Dosage: 20 MILLIGRAM, QD
  2. PREDNISONE. [Suspect]
     Active Substance: PREDNISONE
     Indication: IMMUNOSUPPRESSANT DRUG THERAPY
     Dosage: 15 MILLIGRAM, QD
  3. METHOTREXATE. [Suspect]
     Active Substance: METHOTREXATE
     Indication: IMMUNOSUPPRESSANT DRUG THERAPY
     Dosage: 25 MILLIGRAM, QW (INITIALLY RECEIVED 10 MG PER OS REDUCED THE DOSE TO 15 MG PER WEEK)
     Route: 051
  4. SECUKINUMAB. [Suspect]
     Active Substance: SECUKINUMAB
     Indication: PEMPHIGUS
     Dosage: 150 MILLIGRAM, QW
     Dates: start: 201701

REACTIONS (3)
  - Alanine aminotransferase increased [Unknown]
  - Psoriasis [Unknown]
  - Respiratory tract infection [Recovered/Resolved]

NARRATIVE: CASE EVENT DATE: 201710
